FAERS Safety Report 5140088-6 (Version None)
Quarter: 2006Q4

REPORT INFORMATION
  Report Type: 
  Country: None (occurrence: None)
  Receive Date: 20061026
  Receipt Date: 20061026
  Transmission Date: 20070319
  Serious: Yes (Hospitalization)
  Sender: FDA-Public Use
  Company Number: None

PATIENT
  Age: 58 Year
  Sex: Male
  Weight: 92.0802 kg

DRUGS (7)
  1. ENBREL [Suspect]
     Indication: PSORIATIC ARTHROPATHY
     Dosage: 50 MG QW 59
     Dates: start: 20051029
  2. VICODIN [Concomitant]
  3. LYRICA [Concomitant]
  4. RELAFEN [Concomitant]
  5. CARDIZEM CD [Concomitant]
  6. PREDNISONE TAB [Concomitant]
  7. ZYPREXA [Concomitant]

REACTIONS (4)
  - CELLULITIS [None]
  - INFECTION [None]
  - LOCALISED INFECTION [None]
  - STAPHYLOCOCCAL INFECTION [None]
